FAERS Safety Report 5048593-8 (Version None)
Quarter: 2006Q2

REPORT INFORMATION
  Report Type: 
  Country: None (occurrence: None)
  Receive Date: 20060626
  Receipt Date: 20060615
  Transmission Date: 20061013
  Serious: Yes (Other)
  Sender: FDA-Public Use
  Company Number: 2005BH002397

PATIENT
  Age: 2 Year
  Sex: Male

DRUGS (3)
  1. IMMUNE GLOBULIN (HUMAN) [Suspect]
     Indication: HUMAN HERPESVIRUS 6 INFECTION
     Dosage: 1000 MG/KG;IV
     Route: 042
  2. PHENYTOIN [Concomitant]
  3. MIDAZOLAM HYDROCHLORIDE [Concomitant]

REACTIONS (4)
  - ASTHENIA [None]
  - DEPRESSED LEVEL OF CONSCIOUSNESS [None]
  - ENCEPHALOPATHY [None]
  - PLEOCYTOSIS [None]
